FAERS Safety Report 9363289 (Version 1)
Quarter: 2013Q2

REPORT INFORMATION
  Report Type: Spontaneous
  Country: US (occurrence: None)
  Receive Date: 20130621
  Receipt Date: 20130621
  Transmission Date: 20140414
  Serious: Yes (Other)
  Sender: FDA-Public Use
  Company Number: None

PATIENT
  Age: 72 Year
  Sex: Female
  Weight: 66.68 kg

DRUGS (3)
  1. ETANERCEPT [Suspect]
  2. ADALIMUMAB [Suspect]
  3. MYCOPHENOLATE [Suspect]

REACTIONS (1)
  - Leiomyosarcoma [None]
